FAERS Safety Report 8987171 (Version 1)
Quarter: 2012Q4

REPORT INFORMATION
  Report Type: Report from Study
  Country: HU (occurrence: HU)
  Receive Date: 20121226
  Receipt Date: 20121226
  Transmission Date: 20130627
  Serious: Yes (Death)
  Sender: FDA-Public Use
  Company Number: HU-ROCHE-1173665

PATIENT
  Age: 44 Year
  Sex: Female
  Weight: 72 kg

DRUGS (7)
  1. BEVACIZUMAB [Suspect]
     Indication: BREAST CANCER
     Route: 042
     Dates: start: 20091112, end: 20091127
  2. PACLITAXEL [Suspect]
     Indication: BREAST CANCER
     Route: 042
     Dates: start: 20091112, end: 20091127
  3. ONDANSETRON [Concomitant]
     Indication: VOMITING
     Route: 054
     Dates: start: 20091112, end: 20091211
  4. PANTOPRAZOL [Concomitant]
     Indication: GASTRITIS PROPHYLAXIS
     Route: 048
     Dates: start: 20091112, end: 20091211
  5. DALTEPARIN [Concomitant]
     Indication: THROMBOSIS PROPHYLAXIS
     Dosage: 5000 NE daily
     Route: 058
     Dates: start: 20091112, end: 20091215
  6. ALPRAZOLAM [Concomitant]
     Indication: DEPRESSION
     Route: 048
     Dates: start: 20091112, end: 20091211
  7. OXYCODONE [Concomitant]
     Indication: PAIN
     Route: 048
     Dates: start: 20091112, end: 20091211

REACTIONS (1)
  - Cardiomyopathy [Fatal]
